FAERS Safety Report 5880461-1 (Version None)
Quarter: 2008Q3

REPORT INFORMATION
  Report Type: 
  Country: None (occurrence: None)
  Receive Date: 20080912
  Receipt Date: 20080826
  Transmission Date: 20090109
  Serious: No
  Sender: FDA-Public Use
  Company Number: US-ABBOTT-08P-163-0449210-00

PATIENT
  Sex: Male
  Weight: 69.916 kg

DRUGS (6)
  1. HUMIRA [Suspect]
     Indication: CROHN'S DISEASE
     Dosage: 40MG X 4
     Route: 058
     Dates: start: 20080426, end: 20080426
  2. HUMIRA [Suspect]
     Route: 058
     Dates: end: 20080701
  3. HUMIRA [Suspect]
     Route: 058
     Dates: start: 20080701
  4. MESALAMINE [Concomitant]
     Indication: CROHN'S DISEASE
     Route: 048
  5. PREDNISONE TAB [Concomitant]
     Indication: CROHN'S DISEASE
     Route: 048
     Dates: start: 20080201, end: 20080601
  6. RECTAL FOAM [Concomitant]
     Indication: ANORECTAL DISCOMFORT
     Route: 054
     Dates: start: 20080813

REACTIONS (2)
  - DRUG INEFFECTIVE [None]
  - FATIGUE [None]
